FAERS Safety Report 8799206 (Version 1)
Quarter: 2012Q4

REPORT INFORMATION
  Report Type: 
  Country: US (occurrence: US)
  Receive Date: 20120920
  Receipt Date: 20120920
  Transmission Date: 20130627
  Serious: No
  Sender: FDA-Public Use
  Company Number: US-ASTRAZENECA-2012SE26430

PATIENT
  Age: 79 Year
  Sex: Male
  Weight: 72.6 kg

DRUGS (8)
  1. LISINOPRIL [Suspect]
     Route: 048
  2. METOPROLOL SUCCINATE [Suspect]
     Route: 048
  3. CRESTOR [Suspect]
     Indication: HYPERCHOLESTEROLAEMIA
     Route: 048
  4. MULTIVITAMINS [Concomitant]
  5. LEVOTHYROXINE [Concomitant]
  6. ASPIRIN [Concomitant]
  7. CO-Q10 [Concomitant]
  8. FINISTERIDE [Concomitant]

REACTIONS (1)
  - Glycosylated haemoglobin increased [Unknown]
